FAERS Safety Report 9491646 (Version 1)
Quarter: 2013Q1

REPORT INFORMATION
  Report Type: Not Available
  Country: US (occurrence: US)
  Receive Date: 20121219
  Receipt Date: 20121219
  Transmission Date: 20140127
  Serious: No
  Sender: FDA-Public Use
  Company Number: US-LUNDBECK-DKLU1084595

PATIENT
  Sex: Female

DRUGS (2)
  1. ONFI [Suspect]
     Indication: PARTIAL SEIZURES
  2. ONFI [Suspect]

REACTIONS (4)
  - Weight increased [Unknown]
  - Joint stiffness [Unknown]
  - Local swelling [Unknown]
  - Bowel movement irregularity [Unknown]
